FAERS Safety Report 5223215-1 (Version None)
Quarter: 2007Q1

REPORT INFORMATION
  Report Type: 
  Country: None (occurrence: None)
  Receive Date: 20061201
  Receipt Date: 20060718
  Transmission Date: 20070707
  Serious: No
  Sender: FDA-Public Use
  Company Number: 2005PV006318

PATIENT
  Age: 54 Year
  Sex: Female
  Weight: 98.4306 kg

DRUGS (21)
  1. BYETTA [Suspect]
     Indication: DIABETES MELLITUS NON-INSULIN-DEPENDENT
     Dosage: SEE IMAGE
     Route: 058
     Dates: start: 20051201, end: 20060101
  2. BYETTA [Suspect]
     Indication: DIABETES MELLITUS NON-INSULIN-DEPENDENT
     Dosage: SEE IMAGE
     Route: 058
     Dates: start: 20060101
  3. BYETTA [Suspect]
  4. BYETTA [Suspect]
  5. BYETTA [Suspect]
  6. BYETTA [Suspect]
  7. SEROQUEL [Suspect]
     Dosage: 50 MG; HS
  8. LIPITOR [Suspect]
     Indication: BLOOD CHOLESTEROL
     Dosage: 40 MG; HS;
     Dates: start: 20040101
  9. LIPITOR [Suspect]
     Indication: BLOOD TRIGLYCERIDES
     Dosage: 40 MG; HS;
     Dates: start: 20040101
  10. LISINOPRIL [Suspect]
     Dosage: 10 MG; QD
     Dates: end: 20010101
  11. LISINOPRIL [Suspect]
     Dosage: 10 MG; QD
     Dates: start: 20010101
  12. LITHIUM CARBONATE [Suspect]
     Indication: BIPOLAR DISORDER
     Dosage: 300 MG; BID
     Dates: start: 19860101
  13. ZETIA [Suspect]
     Indication: BLOOD CHOLESTEROL
     Dosage: 10 MG; QD
     Dates: start: 20040101
  14. ZETIA [Suspect]
     Indication: BLOOD TRIGLYCERIDES
     Dosage: 10 MG; QD
     Dates: start: 20040101
  15. COREG [Suspect]
     Dosage: 3.125 MG; BID
     Dates: start: 20030101
  16. SYNTHROID [Suspect]
     Indication: HYPOTHYROIDISM
     Dosage: 125 MCG
  17. KLONOPIN [Suspect]
     Indication: BIPOLAR DISORDER
     Dosage: 0.5 MG; QD
     Dates: start: 20040101
  18. FOLIC ACID [Suspect]
     Dosage: 1 MG; QD
  19. TRICOR [Suspect]
     Indication: BLOOD CHOLESTEROL
     Dosage: 145 MG;QD
     Dates: start: 20040101
  20. HUMALOG [Concomitant]
  21. LANTUS [Concomitant]

REACTIONS (23)
  - ANOREXIA [None]
  - ANXIETY [None]
  - ASTHENIA [None]
  - BLOOD GLUCOSE DECREASED [None]
  - BLOOD GLUCOSE FLUCTUATION [None]
  - BLOOD GLUCOSE INCREASED [None]
  - BRONCHITIS [None]
  - DECREASED APPETITE [None]
  - DIARRHOEA [None]
  - DIZZINESS [None]
  - DRUG INEFFECTIVE [None]
  - FATIGUE [None]
  - FEAR [None]
  - FEELING ABNORMAL [None]
  - GLYCOSYLATED HAEMOGLOBIN INCREASED [None]
  - HYPOGLYCAEMIA [None]
  - NAUSEA [None]
  - NERVOUSNESS [None]
  - PANIC ATTACK [None]
  - STRESS [None]
  - THINKING ABNORMAL [None]
  - TREMOR [None]
  - WEIGHT DECREASED [None]
